FAERS Safety Report 5205852-3 (Version None)
Quarter: 2007Q1

REPORT INFORMATION
  Report Type: 
  Country: None (occurrence: None)
  Receive Date: 20070105
  Receipt Date: 20070105
  Transmission Date: 20070707
  Serious: Yes (Life-Threatening, Hospitalization)
  Sender: FDA-Public Use
  Company Number: None

PATIENT
  Sex: Male
  Weight: 104.7809 kg

DRUGS (8)
  1. AZATHIOPRINE [Suspect]
     Indication: PERITONEAL DIALYSIS
     Dosage: 250MG DAILY PO
     Route: 048
     Dates: start: 20050601, end: 20060807
  2. GABAPENTIN [Suspect]
     Indication: NEUROPATHY PERIPHERAL
     Dosage: 800MG TID PO
     Route: 048
     Dates: start: 20050907, end: 20060808
  3. FUROSEMIDE [Concomitant]
  4. RANITIDINE [Concomitant]
  5. CYANOCOBALAMIN [Concomitant]
  6. LISINOPRIL [Concomitant]
  7. DILTIAZEM HCL [Concomitant]
  8. INSULIN [Concomitant]

REACTIONS (5)
  - BODY TEMPERATURE INCREASED [None]
  - CHILLS [None]
  - OEDEMA PERIPHERAL [None]
  - PAIN IN EXTREMITY [None]
  - PANCYTOPENIA [None]
